FAERS Safety Report 12892615 (Version 2)
Quarter: 2016Q4

REPORT INFORMATION
  Report Type: Spontaneous
  Country: PR (occurrence: US)
  Receive Date: 20161028
  Receipt Date: 20161130
  Transmission Date: 20170207
  Serious: Yes (Other)
  Sender: FDA-Public Use
  Company Number: US-JNJCP-30000358467

PATIENT
  Sex: Female
  Weight: 75 kg

DRUGS (3)
  1. NEUTROGENA OIL FREE ACNE STRESS CONTROL [Suspect]
     Active Substance: SALICYLIC ACID
     Indication: THERAPEUTIC SKIN CARE TOPICAL
     Dosage: LESS THAN A DIME SIZED AMOUNT, ONCE
     Route: 061
     Dates: start: 20161006, end: 20161006
  2. UNSPECIFIED LIPSTICK [Suspect]
     Active Substance: COSMETICS
     Indication: PRODUCT USED FOR UNKNOWN INDICATION
     Route: 061
  3. NEUTROGENA OIL FREE ACNE MOISTURIZER PINK GRAPEFRUIT [Suspect]
     Active Substance: SALICYLIC ACID
     Indication: DRY SKIN PROPHYLAXIS
     Dosage: ONE FORTH A DIME SIZE AMOUNT, ONCE
     Route: 061
     Dates: start: 20161006, end: 20161006

REACTIONS (14)
  - Urticaria [None]
  - Blood pressure decreased [None]
  - Tremor [None]
  - Fatigue [None]
  - Syncope [None]
  - Burning sensation [None]
  - Throat tightness [None]
  - Asthenia [None]
  - Feeling hot [None]
  - Pruritus [None]
  - Swelling face [None]
  - Eyelid oedema [None]
  - Hypersensitivity [Recovered/Resolved]
  - Peripheral swelling [None]

NARRATIVE: CASE EVENT DATE: 20161007
